FAERS Safety Report 4625076-8 (Version None)
Quarter: 2005Q2

REPORT INFORMATION
  Report Type: 
  Country: None (occurrence: None)
  Receive Date: 20050325
  Receipt Date: 20041220
  Transmission Date: 20051028
  Serious: Yes (Hospitalization)
  Sender: FDA-Public Use
  Company Number: USA041286626

PATIENT
  Age: 81 Year
  Sex: Female

DRUGS (3)
  1. EVISTA [Suspect]
     Dates: start: 19970101
  2. FORTEO [Suspect]
     Indication: OSTEOPOROSIS
     Dates: start: 20041122
  3. CALCIUM GLUCONATE [Concomitant]

REACTIONS (3)
  - ASTHENIA [None]
  - CHEST PAIN [None]
  - HEART RATE INCREASED [None]
